FAERS Safety Report 17400520 (Version 1)
Quarter: 2020Q1

REPORT INFORMATION
  Report Type: Spontaneous
  Country: RW (occurrence: RW)
  Receive Date: 20200211
  Receipt Date: 20200211
  Transmission Date: 20200409
  Serious: Yes (Death)
  Sender: FDA-Public Use
  Company Number: RW-UCBSA-2020004803

PATIENT
  Sex: Male
  Weight: 104 kg

DRUGS (2)
  1. KEPPRA [Suspect]
     Active Substance: LEVETIRACETAM
     Indication: EPILEPSY
     Dosage: 500 MILLIGRAM, 2X/DAY (BID)
     Route: 048
     Dates: start: 20120428, end: 20190105
  2. AMLOZAAR [Concomitant]
     Indication: HYPERTENSION

REACTIONS (1)
  - Hepatocellular carcinoma [Fatal]
